FAERS Safety Report 7369278-9 (Version None)
Quarter: 2011Q1

REPORT INFORMATION
  Report Type: 
  Country: None (occurrence: None)
  Receive Date: 20110323
  Receipt Date: 20110316
  Transmission Date: 20110831
  Serious: Yes (Death)
  Sender: FDA-Public Use
  Company Number: A0916427A

PATIENT
  Age: 53 Year
  Sex: Male
  Weight: 82.3 kg

DRUGS (4)
  1. AVANDAMET [Suspect]
     Route: 048
     Dates: start: 20090821
  2. GLUCOPHAGE [Concomitant]
  3. SIMVASTATIN [Concomitant]
  4. AVANDIA [Suspect]
     Route: 048
     Dates: start: 20070101

REACTIONS (2)
  - SUDDEN CARDIAC DEATH [None]
  - DEATH [None]
